FAERS Safety Report 16082693 (Version 1)
Quarter: 2019Q1

REPORT INFORMATION
  Report Type: Spontaneous
  Country: GB (occurrence: GB)
  Receive Date: 20190318
  Receipt Date: 20190318
  Transmission Date: 20190418
  Serious: Yes (Other)
  Sender: FDA-Public Use
  Company Number: GB-TEVA-2019-GB-1024472

PATIENT
  Age: 68 Year
  Sex: Male
  Weight: 113 kg

DRUGS (7)
  1. ACETYLSALICYLIC ACID [Concomitant]
     Active Substance: ASPIRIN
  2. ATORVASTATIN [Concomitant]
     Active Substance: ATORVASTATIN
  3. ISOSORBIDE 5 MONONITRATE [Concomitant]
  4. CITALOPRAM HYDROCHLORIDE [Concomitant]
     Active Substance: CITALOPRAM HYDROCHLORIDE
  5. NICORANDIL [Suspect]
     Active Substance: NICORANDIL
     Indication: ANGINA UNSTABLE
     Dosage: 60 MILLIGRAM DAILY;
     Route: 048
     Dates: start: 20150515, end: 20180511
  6. IBUPROFEN. [Suspect]
     Active Substance: IBUPROFEN
     Indication: MYALGIA
     Dosage: 1200 MILLIGRAM DAILY;
     Route: 048
     Dates: start: 20151114, end: 20180511
  7. RENAVIT [Concomitant]

REACTIONS (4)
  - Abnormal loss of weight [Recovered/Resolved]
  - Rectal haemorrhage [Recovered/Resolved]
  - Faecal calprotectin abnormal [Recovered/Resolved]
  - Diarrhoea [Recovered/Resolved]

NARRATIVE: CASE EVENT DATE: 20180304
